FAERS Safety Report 15640448 (Version 2)
Quarter: 2018Q4

REPORT INFORMATION
  Report Type: Report from Study
  Country: CA (occurrence: CA)
  Receive Date: 20181120
  Receipt Date: 20181127
  Transmission Date: 20190205
  Serious: Yes (Other)
  Sender: FDA-Public Use
  Company Number: CA-SHIRE-CA201738047

PATIENT

DRUGS (1)
  1. ELAPRASE [Suspect]
     Active Substance: IDURSULFASE
     Indication: MUCOPOLYSACCHARIDOSIS II
     Dosage: 41.5 MG, 1X/WEEK
     Route: 042
     Dates: start: 20090401

REACTIONS (5)
  - Apparent death [Unknown]
  - Road traffic accident [Unknown]
  - Loss of consciousness [Unknown]
  - Inguinal hernia [Unknown]
  - Inappropriate schedule of product administration [Unknown]
